FAERS Safety Report 11539127 (Version 1)
Quarter: 2015Q3

REPORT INFORMATION
  Report Type: Spontaneous
  Country: US (occurrence: None)
  Receive Date: 20150922
  Receipt Date: 20150922
  Transmission Date: 20151125
  Serious: No
  Sender: FDA-Public Use
  Company Number: None

PATIENT
  Age: 62 Year
  Sex: Male
  Weight: 90.27 kg

DRUGS (4)
  1. ONE-A-DAY FOR SENIORS [Concomitant]
  2. OCUVITE [Concomitant]
     Active Substance: VITAMINS
  3. FLAX SEED PILL [Concomitant]
  4. TERBINAFINE HYDOCHLORIDE [Suspect]
     Active Substance: TERBINAFINE HYDROCHLORIDE
     Indication: ONYCHOMYCOSIS
     Dosage: 30 PILLS  ONE PER DAY  ONCE DAILY  TAKEN BY MOUTH
     Route: 048
     Dates: start: 20150721, end: 20150916

REACTIONS (3)
  - Dysgeusia [None]
  - Renal disorder [None]
  - Chromaturia [None]

NARRATIVE: CASE EVENT DATE: 20150916
